FAERS Safety Report 24246040 (Version 1)
Quarter: 2024Q3

REPORT INFORMATION
  Report Type: Spontaneous
  Country: FR (occurrence: FR)
  Receive Date: 20240824
  Receipt Date: 20240824
  Transmission Date: 20241016
  Serious: Yes (Congenital Anomaly, Other)
  Sender: ACCORD
  Company Number: None

PATIENT
  Age: 1 Day
  Sex: Male
  Weight: 0.79 kg

DRUGS (8)
  1. QUETIAPINE FUMARATE [Suspect]
     Active Substance: QUETIAPINE FUMARATE
     Indication: Schizophrenia
     Dosage: PRECISE DATES OF TREATMENT NOT KNOWN
  2. ALDOMET [Suspect]
     Active Substance: METHYLDOPA
     Indication: Schizophrenia
  3. HALDOL [Suspect]
     Active Substance: HALOPERIDOL
     Indication: Schizophrenia
  4. TRANDATE [Suspect]
     Active Substance: LABETALOL HYDROCHLORIDE
     Indication: Schizophrenia
     Dosage: 400 MG, TABLET
  5. TROPATEPINE HYDROCHLORIDE [Suspect]
     Active Substance: TROPATEPINE HYDROCHLORIDE
     Indication: Schizophrenia
     Dosage: 10 MG, TABLET
  6. LITHIUM [Suspect]
     Active Substance: LITHIUM
     Indication: Schizophrenia
  7. URAPIDIL [Suspect]
     Active Substance: URAPIDIL
     Indication: Schizophrenia
  8. NICARDIPINE [Suspect]
     Active Substance: NICARDIPINE
     Indication: Schizophrenia
     Dosage: 50 MG, PROLONGED RELEASE CAPSULE

REACTIONS (9)
  - Anaemia neonatal [Recovered/Resolved]
  - Foetal growth restriction [Recovered/Resolved]
  - Bronchopulmonary dysplasia [Recovered/Resolved]
  - Neonatal respiratory distress syndrome [Recovered/Resolved]
  - Maternal exposure during pregnancy [Recovered/Resolved]
  - Hyponatraemia [Recovered/Resolved]
  - Premature baby [Recovered/Resolved]
  - Hypospadias [Recovered/Resolved]
  - Jaundice neonatal [Recovered/Resolved]
